FAERS Safety Report 12599675 (Version 1)
Quarter: 2016Q3

REPORT INFORMATION
  Report Type: Spontaneous
  Country: US (occurrence: US)
  Receive Date: 20160727
  Receipt Date: 20160727
  Transmission Date: 20161109
  Serious: No
  Sender: FDA-Public Use
  Company Number: US-SA-2015SA102857

PATIENT
  Sex: Male
  Weight: 82 kg

DRUGS (8)
  1. SEROQUEL [Suspect]
     Active Substance: QUETIAPINE FUMARATE
     Indication: SLEEP DISORDER
     Dosage: STARTED 6 WEEKS AGO
     Route: 065
     Dates: start: 2002
  2. SKELAXIN [Suspect]
     Active Substance: METAXALONE
     Indication: MUSCLE SPASMS
     Dosage: FREQUENCY: ALL AT ONCE AT BEDTIME
     Route: 065
     Dates: start: 2000
  3. CLONAPIN [Suspect]
     Active Substance: CLONAZEPAM
     Indication: SLEEP DISORDER
     Route: 065
     Dates: start: 2000
  4. NEURONTIN [Suspect]
     Active Substance: GABAPENTIN
     Indication: NEUROPATHY PERIPHERAL
     Dosage: STARTED 10 YEARS AGO
     Route: 065
  5. CHANTIX [Suspect]
     Active Substance: VARENICLINE TARTRATE
     Indication: EX-TOBACCO USER
     Route: 065
     Dates: start: 20150512
  6. CHANTIX [Suspect]
     Active Substance: VARENICLINE TARTRATE
     Indication: EX-TOBACCO USER
     Dosage: TOOK FOR 2 WEEKS
     Route: 065
     Dates: end: 20150512
  7. AMBIEN [Suspect]
     Active Substance: ZOLPIDEM TARTRATE
     Indication: SLEEP DISORDER
     Dosage: FREQUENCY: ALL AT ONCE AT BEDTIME
     Route: 065
  8. BACLOFEN. [Suspect]
     Active Substance: BACLOFEN
     Indication: MUSCLE DISORDER
     Route: 065
     Dates: start: 2000

REACTIONS (5)
  - Insomnia [Not Recovered/Not Resolved]
  - Feeling abnormal [Not Recovered/Not Resolved]
  - Drug ineffective [Unknown]
  - Thinking abnormal [Not Recovered/Not Resolved]
  - Head discomfort [Not Recovered/Not Resolved]

NARRATIVE: CASE EVENT DATE: 20150704
